FAERS Safety Report 16720032 (Version 1)
Quarter: 2019Q4

REPORT INFORMATION
  Report Type: Spontaneous
  Country: US (occurrence: US)
  Receive Date: 20190819
  Receipt Date: 20190819
  Transmission Date: 20200122
  Serious: Yes (Disabling)
  Sender: FDA-Public Use
  Company Number: None

PATIENT
  Age: 66 Year
  Sex: Male
  Weight: 83.25 kg

DRUGS (7)
  1. EQUATE RESTORE PM NIGHTTIME LUBRICANT EYE [Suspect]
     Active Substance: MINERAL OIL\PETROLATUM
  2. LEVOTHYROXINE. [Concomitant]
     Active Substance: LEVOTHYROXINE
  3. EQUATE COMFORT [Suspect]
     Active Substance: CARBOXYMETHYLCELLULOSE SODIUM\HYPROMELLOSES
     Indication: EYE INJURY
     Dates: start: 20190510, end: 20190704
  4. EQUATE RESTORE TEARS [Suspect]
     Active Substance: CARBOXYMETHYLCELLULOSE SODIUM
  5. CUMIN EXTRACT [Concomitant]
  6. VITAMINS [Concomitant]
     Active Substance: VITAMINS
  7. FLAXSEED [Concomitant]
     Active Substance: FLAX SEED

REACTIONS (6)
  - Sinusitis [None]
  - Eye irritation [None]
  - Eye infection [None]
  - Lacrimation increased [None]
  - Eye pain [None]
  - Recalled product administered [None]

NARRATIVE: CASE EVENT DATE: 20190510
